FAERS Safety Report 18419118 (Version 10)
Quarter: 2020Q4

REPORT INFORMATION
  Report Type: Report from Study
  Country: CN (occurrence: CN)
  Receive Date: 20201023
  Receipt Date: 20201222
  Transmission Date: 20210114
  Serious: Yes (Other)
  Sender: FDA-Public Use
  Company Number: CN-ASTELLAS-2020US037301

PATIENT
  Age: 66 Year
  Sex: Male

DRUGS (9)
  1. LEUPRORELIN [Concomitant]
     Active Substance: LEUPROLIDE ACETATE
     Indication: PROSTATE CANCER
     Route: 058
     Dates: start: 20200825, end: 20201019
  2. CEFUROXIME. [Concomitant]
     Active Substance: CEFUROXIME
     Indication: PTERYGIUM
  3. TRIPTORELIN [Concomitant]
     Active Substance: TRIPTORELIN
     Indication: PROSTATE CANCER
     Dosage: 15 MG, EVERY 12W
     Route: 030
     Dates: start: 20201020
  4. CEFUROXIME. [Concomitant]
     Active Substance: CEFUROXIME
     Indication: DACRYOSTENOSIS ACQUIRED
     Dosage: 0.25 G, TWICE DAILY
     Route: 048
     Dates: start: 20200922, end: 20201003
  5. RECOMBINANT HUMAN EPIDERMAL GROWTH FACTOR DERIVATIVE [Concomitant]
     Indication: PTERYGIUM
  6. LEVOFLOXACIN HYDROCHLORIDE [Concomitant]
     Active Substance: LEVOFLOXACIN HYDROCHLORIDE
     Indication: PTERYGIUM
  7. LEVOFLOXACIN HYDROCHLORIDE [Concomitant]
     Active Substance: LEVOFLOXACIN HYDROCHLORIDE
     Indication: DACRYOSTENOSIS ACQUIRED
     Dosage: UNK, UNKNOWN FREQ. (4-6 TIMES/DAY)
     Route: 061
     Dates: start: 20200922, end: 20200929
  8. ENZALUTAMIDE [Suspect]
     Active Substance: ENZALUTAMIDE
     Indication: PROSTATE CANCER
     Dosage: UNK UNK, ONCE DAILY
     Route: 048
     Dates: start: 20200825, end: 20201020
  9. RECOMBINANT HUMAN EPIDERMAL GROWTH FACTOR DERIVATIVE [Concomitant]
     Indication: DACRYOSTENOSIS ACQUIRED
     Dosage: UNK, UNKNOWN FREQ. (4-6 TIMES/DAY)
     Route: 061
     Dates: start: 20200922, end: 20200929

REACTIONS (1)
  - Hepatic function abnormal [Recovering/Resolving]

NARRATIVE: CASE EVENT DATE: 20201020
